FAERS Safety Report 12586931 (Version 2)
Quarter: 2016Q3

REPORT INFORMATION
  Report Type: Spontaneous
  Country: US (occurrence: US)
  Receive Date: 20160725
  Receipt Date: 20160804
  Transmission Date: 20161109
  Serious: No
  Sender: FDA-Public Use
  Company Number: US-PFIZER INC-2016356762

PATIENT
  Age: 72 Year
  Sex: Male
  Weight: 103.87 kg

DRUGS (6)
  1. CYMBALTA [Concomitant]
     Active Substance: DULOXETINE HYDROCHLORIDE
     Indication: DEPRESSION
     Dosage: 300 MG, AT NIGHT,1X/DAY
  2. FOLIC ACID. [Concomitant]
     Active Substance: FOLIC ACID
     Indication: ANAEMIA
     Dosage: 800MCG, TWO AT NIGHT
     Route: 048
     Dates: start: 2016
  3. ARIPIPRAZOLE. [Concomitant]
     Active Substance: ARIPIPRAZOLE
     Indication: DEPRESSION
     Dosage: 5 MG, 1X/DAY
     Route: 048
     Dates: start: 201607
  4. FERROUS SULFATE. [Concomitant]
     Active Substance: FERROUS SULFATE
     Indication: ANAEMIA
     Dosage: 150MG ONCE A DAY AND 65 MG TWICE A DAY
     Route: 048
     Dates: start: 2016
  5. LYRICA [Suspect]
     Active Substance: PREGABALIN
     Indication: BACK DISORDER
     Dosage: 75 MG,AT NIGHT, 1X/DAY
     Route: 048
     Dates: start: 201607
  6. CYMBALTA [Concomitant]
     Active Substance: DULOXETINE HYDROCHLORIDE
     Dosage: 300MG TWO A DAY,NIGHT
     Route: 048

REACTIONS (1)
  - Headache [Recovered/Resolved]

NARRATIVE: CASE EVENT DATE: 201607
